FAERS Safety Report 4514758-4 (Version None)
Quarter: 2004Q4

REPORT INFORMATION
  Report Type: 
  Country: None (occurrence: None)
  Receive Date: 20041201
  Receipt Date: 20041119
  Transmission Date: 20050328
  Serious: Yes (Other)
  Sender: FDA-Public Use
  Company Number: US-JNJFOC-20041105749

PATIENT
  Sex: Female
  Weight: 36.29 kg

DRUGS (2)
  1. REMICADE [Suspect]
     Dosage: LAST OF SIX INFUSIONS
     Route: 042
  2. REMICADE [Suspect]
     Route: 042

REACTIONS (4)
  - BLOOD PRESSURE DECREASED [None]
  - CYANOSIS [None]
  - DYSPNOEA [None]
  - WHEEZING [None]
